FAERS Safety Report 21559672 (Version 1)
Quarter: 2022Q4

REPORT INFORMATION
  Report Type: Spontaneous
  Country: US (occurrence: US)
  Receive Date: 20221107
  Receipt Date: 20221107
  Transmission Date: 20230112
  Serious: No
  Sender: FDA-Public Use
  Company Number: US-GLENMARK PHARMACEUTICALS-2022GMK075708

PATIENT

DRUGS (1)
  1. RYALTRIS [Suspect]
     Active Substance: MOMETASONE FUROATE MONOHYDRATE\OLOPATADINE HYDROCHLORIDE
     Indication: Product used for unknown indication
     Dosage: 2 DOSAGE FORM, BID (2 SPRAYS IN EACH NOSTRIL)
     Route: 045

REACTIONS (3)
  - Ear swelling [Recovered/Resolved]
  - Dry throat [Recovered/Resolved]
  - Oropharyngeal pain [Recovered/Resolved]
